FAERS Safety Report 10465250 (Version 1)
Quarter: 2014Q3

REPORT INFORMATION
  Report Type: Spontaneous
  Country: US (occurrence: US)
  Receive Date: 20140919
  Receipt Date: 20140919
  Transmission Date: 20150326
  Serious: Yes (Hospitalization, Other)
  Sender: FDA-Public Use
  Company Number: US-ELI_LILLY_AND_COMPANY-US201409003425

PATIENT
  Age: 57 Year
  Sex: Male

DRUGS (2)
  1. CIALIS [Suspect]
     Active Substance: TADALAFIL
     Dosage: 20 MG, WEEKLY (1/W)
     Route: 065
  2. CIALIS [Suspect]
     Active Substance: TADALAFIL
     Indication: PRODUCT USED FOR UNKNOWN INDICATION
     Dosage: 20 MG, WEEKLY (1/W)
     Route: 065
     Dates: start: 2011, end: 2012

REACTIONS (7)
  - Pancreatic neoplasm [Not Recovered/Not Resolved]
  - Pancreatitis [Unknown]
  - Thrombosis [Unknown]
  - Testicular neoplasm [Not Recovered/Not Resolved]
  - Hepatic neoplasm [Not Recovered/Not Resolved]
  - Biliary cyst [Not Recovered/Not Resolved]
  - Adverse drug reaction [Unknown]
